FAERS Safety Report 4754309-2 (Version None)
Quarter: 2005Q3

REPORT INFORMATION
  Report Type: 
  Country: None (occurrence: None)
  Receive Date: 20050825
  Receipt Date: 20050825
  Transmission Date: 20060218
  Serious: Yes (Other)
  Sender: FDA-Public Use
  Company Number: None

PATIENT
  Age: 85 Year
  Sex: Female
  Weight: 87.9978 kg

DRUGS (2)
  1. ZOCOR [Suspect]
     Indication: HEART DISEASE CONGENITAL
     Dosage: 40 MG HS
     Dates: start: 20050620
  2. ZOCOR [Suspect]
     Indication: HYPERLIPIDAEMIA
     Dosage: 40 MG HS
     Dates: start: 20050620

REACTIONS (2)
  - ASTHENIA [None]
  - NERVOUSNESS [None]
